FAERS Safety Report 8104395-7 (Version None)
Quarter: 2011Q4

REPORT INFORMATION
  Report Type: 
  Country: None (occurrence: None)
  Receive Date: 20111222
  Receipt Date: 20110824
  Transmission Date: 20120403
  Serious: Yes (Hospitalization)
  Sender: FDA-Public Use
  Company Number: UTC-009689

PATIENT
  Age: 60 Year
  Sex: Female
  Weight: 84.1 kg

DRUGS (2)
  1. DIURETICS (DIURETICS) [Concomitant]
  2. TYVASO [Suspect]
     Indication: COR PULMONALE CHRONIC
     Dosage: 168 MCG (42 MCG,4 SESSIONS),INHALATION
     Route: 055
     Dates: start: 20110217

REACTIONS (2)
  - SWELLING [None]
  - FLUID RETENTION [None]
